FAERS Safety Report 8692083 (Version 3)
Quarter: 2012Q4

REPORT INFORMATION
  Report Type: Report from Study
  Country: SE (occurrence: SE)
  Receive Date: 20120730
  Receipt Date: 20121108
  Transmission Date: 20130627
  Serious: Yes (Hospitalization)
  Sender: FDA-Public Use
  Company Number: SE-ASTRAZENECA-2012SE51192

PATIENT
  Age: 24281 Day
  Sex: Male

DRUGS (8)
  1. AZD6140 [Suspect]
     Indication: CORONARY ARTERY DISEASE
     Route: 048
     Dates: start: 20111102, end: 20120718
  2. AZD6140 [Suspect]
     Indication: CORONARY ARTERY DISEASE
     Route: 048
     Dates: start: 20121030
  3. TROMBYL [Suspect]
     Route: 048
     Dates: end: 20120719
  4. LOSARTAN [Concomitant]
     Indication: CORONARY ARTERY DISEASE
     Route: 048
  5. METOPROLOL [Concomitant]
     Indication: CORONARY ARTERY DISEASE
     Route: 048
  6. SIMVASTATIN [Concomitant]
     Indication: HYPERCHOLESTEROLAEMIA
     Route: 048
  7. NITROLINGUAL [Concomitant]
     Indication: CORONARY ARTERY DISEASE
     Route: 060
  8. FELODIPIN [Concomitant]
     Indication: HYPERTENSION
     Route: 048

REACTIONS (1)
  - Gastric ulcer [Recovered/Resolved]
